FAERS Safety Report 14176090 (Version 2)
Quarter: 2017Q4

REPORT INFORMATION
  Report Type: Spontaneous
  Country: US (occurrence: US)
  Receive Date: 20171109
  Receipt Date: 20171211
  Transmission Date: 20180321
  Serious: Yes (Other)
  Sender: FDA-Public Use
  Company Number: US-009507513-1710USA016167

PATIENT
  Sex: Female
  Weight: 48.07 kg

DRUGS (3)
  1. NEXPLANON [Suspect]
     Active Substance: ETONOGESTREL
     Dosage: 1 UNIT, UNK
     Route: 059
     Dates: start: 20170519
  2. NEXPLANON [Suspect]
     Active Substance: ETONOGESTREL
     Dosage: 1 UNIT, UNK
     Route: 059
  3. MIRENA [Suspect]
     Active Substance: LEVONORGESTREL
     Dosage: 1 UNIT, UNK

REACTIONS (8)
  - Abortion spontaneous [Recovered/Resolved]
  - Amenorrhoea [Unknown]
  - Migration of implanted drug [Unknown]
  - Maternal exposure before pregnancy [Unknown]
  - Implant site fibrosis [Unknown]
  - Complication associated with device [Recovered/Resolved]
  - Difficulty removing drug implant [Unknown]
  - Pelvic inflammatory disease [Unknown]

NARRATIVE: CASE EVENT DATE: 2017
